FAERS Safety Report 19731886 (Version 1)
Quarter: 2021Q3

REPORT INFORMATION
  Report Type: Spontaneous
  Country: US (occurrence: US)
  Receive Date: 20210820
  Receipt Date: 20210820
  Transmission Date: 20211014
  Serious: Yes (Other)
  Sender: FDA-Public Use
  Company Number: None

PATIENT
  Age: 66 Year
  Sex: Female

DRUGS (1)
  1. GLATIRAMER PFS40MG/ML [Suspect]
     Active Substance: GLATIRAMER ACETATE
     Route: 058
     Dates: start: 201511

REACTIONS (3)
  - Chills [None]
  - Muscle tightness [None]
  - Muscle spasms [None]

NARRATIVE: CASE EVENT DATE: 20210807
